FAERS Safety Report 18776384 (Version 3)
Quarter: 2021Q1

REPORT INFORMATION
  Report Type: Report from Study
  Country: None (occurrence: GR)
  Receive Date: 20210123
  Receipt Date: 20210202
  Transmission Date: 20210419
  Serious: Yes (Hospitalization)
  Sender: FDA-Public Use
  Company Number: GR-ABBVIE-21K-066-3740800-00

PATIENT
  Age: 55 Year
  Sex: Female
  Weight: 51 kg

DRUGS (16)
  1. VITAMIN D3 [Concomitant]
     Active Substance: CHOLECALCIFEROL
     Indication: OSTEOPOROSIS
     Dosage: 1 X 1 (AT 23:00)
     Route: 048
  2. HYDROFLUX [Concomitant]
     Indication: CARDIOMYOPATHY
     Dosage: 1 X 1 (AT 08:00)
     Route: 048
  3. ELIQUIS [Concomitant]
     Active Substance: APIXABAN
     Indication: ARRHYTHMIA
     Dosage: 1 X 2 (AT 08:00 + AT 23:00)
     Route: 048
  4. CLONOTRIL [Concomitant]
     Active Substance: CLONAZEPAM
     Indication: NIGHTMARE
     Dosage: 1 X 1 (AT 23:00)
     Route: 048
  5. CARVEPEN [Concomitant]
     Active Substance: CARVEDILOL
     Indication: ARRHYTHMIA
     Dosage: 1 X 2 (AT 08:00 + AT 16:00)
     Route: 048
  6. ANGORON [Concomitant]
     Active Substance: AMIODARONE HYDROCHLORIDE
     Indication: ARRHYTHMIA
     Dosage: 1 X 1 (08:00) (EXCEPT WED. + SUN.)
     Route: 048
  7. DUODOPA [Suspect]
     Active Substance: CARBIDOPA\LEVODOPA
     Indication: PARKINSON^S DISEASE
     Dosage: MORNING DOSE: 15.0 ML; CONTINUOUS RATE: 4.4 ML/H; EXTRA DOSE: 2.5 ML
     Route: 050
     Dates: start: 20210111
  8. DUODOPA [Suspect]
     Active Substance: CARBIDOPA\LEVODOPA
  9. MADOPAR [Concomitant]
     Active Substance: BENSERAZIDE HYDROCHLORIDE\LEVODOPA
     Indication: PARKINSON^S DISEASE
     Dosage: UNIT DOSE: (200 + 50) MG; FORM STRENGTH: (100 + 25) MG?1 X 1 (AT 22:00)
     Route: 048
  10. ALDACTONE [Concomitant]
     Active Substance: SPIRONOLACTONE
     Indication: CARDIOMYOPATHY
     Dosage: 1 X 1 (AT 16:00)
     Route: 048
  11. RAFESAC [Concomitant]
     Indication: ANAEMIA
     Dosage: 1 X 1 (AT NOON)
     Route: 048
  12. HYDROCOBAMINE [Concomitant]
     Active Substance: HYDROXOCOBALAMIN HYDROCHLORIDE
     Indication: VITAMIN B12 DECREASED
     Dosage: 1 X 1 (AT 10:00)
     Route: 048
  13. LADOSE [Concomitant]
     Active Substance: FLUOXETINE HYDROCHLORIDE
     Indication: DEPRESSION
     Dosage: 1 X 1 (12:30 ? 13:00)
     Route: 048
  14. TIROSINT [Concomitant]
     Active Substance: LEVOTHYROXINE SODIUM
     Indication: HYPOTHYROIDISM
     Dosage: 1 X 1 (6AM) MONDAY ? THURSDAY ? SATURDAY
     Route: 048
  15. CALCIORAL D3 [Concomitant]
     Active Substance: CALCIUM CARBONATE\CHOLECALCIFEROL
     Indication: OSTEOPOROSIS
     Dosage: 1 X 1 (AT 23:00)
     Route: 048
  16. CONTROLOC [Concomitant]
     Active Substance: PANTOPRAZOLE SODIUM
     Indication: PROPHYLAXIS
     Route: 048

REACTIONS (2)
  - Stoma site inflammation [Recovered/Resolved]
  - C-reactive protein increased [Recovering/Resolving]
